FAERS Safety Report 9841549 (Version 1)
Quarter: 2014Q1

REPORT INFORMATION
  Report Type: Spontaneous
  Country: FR (occurrence: FR)
  Receive Date: 20140124
  Receipt Date: 20140124
  Transmission Date: 20141002
  Serious: Yes (Hospitalization)
  Sender: FDA-Public Use
  Company Number: FR-SA-2014SA007114

PATIENT
  Age: 65 Year
  Sex: Male

DRUGS (4)
  1. PLAVIX [Suspect]
     Indication: PRODUCT USED FOR UNKNOWN INDICATION
     Route: 048
     Dates: start: 20120309, end: 20120607
  2. PRADAXA [Suspect]
     Indication: PRODUCT USED FOR UNKNOWN INDICATION
     Route: 048
     Dates: start: 20120309, end: 20120607
  3. KARDEGIC [Concomitant]
     Route: 048
     Dates: start: 201203
  4. CORDARONE [Concomitant]
     Route: 048
     Dates: start: 201203

REACTIONS (2)
  - Hypoprothrombinaemia [Recovered/Resolved]
  - Anaemia [Recovered/Resolved]
